FAERS Safety Report 16056082 (Version 1)
Quarter: 2019Q2

REPORT INFORMATION
  Report Type: Spontaneous
  Country: US (occurrence: US)
  Receive Date: 20190308
  Receipt Date: 20190308
  Transmission Date: 20190711
  Serious: Yes (Disabling, Other)
  Sender: FDA-Public Use
  Company Number: None

PATIENT
  Age: 54 Year
  Sex: Female
  Weight: 67.5 kg

DRUGS (1)
  1. SOMADERM HGH GEL [Suspect]
     Active Substance: HOMEOPATHICS
     Indication: HORMONE THERAPY
     Dosage: ?          QUANTITY:3.5 OUNCE(S);?
     Route: 061
     Dates: start: 20180705, end: 20190301

REACTIONS (3)
  - Weight increased [None]
  - Palpitations [None]
  - Anxiety [None]

NARRATIVE: CASE EVENT DATE: 20190201
